FAERS Safety Report 26158055 (Version 1)
Quarter: 2025Q4

REPORT INFORMATION
  Report Type: Spontaneous
  Country: US (occurrence: None)
  Receive Date: 20251215
  Receipt Date: 20251215
  Transmission Date: 20260118
  Serious: Yes (Hospitalization)
  Sender: FDA-CTU
  Company Number: None

PATIENT
  Age: 64 Year
  Sex: Male
  Weight: 78 kg

DRUGS (1)
  1. DURVALUMAB [Suspect]
     Active Substance: DURVALUMAB
     Dosage: 1500 MG ONCE IV
     Route: 042
     Dates: start: 20250724, end: 20250724

REACTIONS (1)
  - Immune-mediated enterocolitis [None]

NARRATIVE: CASE EVENT DATE: 20250919
